FAERS Safety Report 16913769 (Version 7)
Quarter: 2019Q4

REPORT INFORMATION
  Report Type: Spontaneous
  Country: JP (occurrence: JP)
  Receive Date: 20191014
  Receipt Date: 20191218
  Transmission Date: 20200122
  Serious: Yes (Hospitalization)
  Sender: FDA-Public Use
  Company Number: JP-JNJFOC-20191005898

PATIENT
  Age: 89 Year
  Sex: Male

DRUGS (8)
  1. ERLEADA [Suspect]
     Active Substance: APALUTAMIDE
     Indication: PROSTATE CANCER
     Route: 048
     Dates: start: 20190610, end: 20190913
  2. TAMSULOSIN HYDROCHLORIDE. [Concomitant]
     Active Substance: TAMSULOSIN HYDROCHLORIDE
     Indication: INTERSTITIAL LUNG DISEASE
     Route: 048
  3. HARNAL [Concomitant]
     Active Substance: TAMSULOSIN HYDROCHLORIDE
     Indication: PRODUCT USED FOR UNKNOWN INDICATION
     Dosage: ABOUT 20 YEARS AGO
     Route: 048
  4. DIAZEPAM. [Concomitant]
     Active Substance: DIAZEPAM
     Route: 048
  5. BISOPROLOL FUMARATE. [Concomitant]
     Active Substance: BISOPROLOL FUMARATE
     Indication: HYPERTENSION
     Dosage: UNKNOWN
     Route: 048
  6. UNISIA [Concomitant]
     Active Substance: AMLODIPINE BESYLATE\CANDESARTAN CILEXETIL
     Indication: HYPERTENSION
     Dosage: UNKNOWN (ALREADY STARTED AS OF MARCH 3,2015)
     Route: 048
  7. CERCINE [Concomitant]
     Active Substance: DIAZEPAM
     Indication: PRODUCT USED FOR UNKNOWN INDICATION
     Dosage: UNKNOWN(AS PER REQUEST)
     Route: 048
  8. CAMSHIA [Concomitant]
     Active Substance: AMLODIPINE BESYLATE\CANDESARTAN CILEXETIL
     Indication: PRODUCT USED FOR UNKNOWN INDICATION
     Dosage: UNKNOWN
     Route: 048

REACTIONS (2)
  - Interstitial lung disease [Recovered/Resolved]
  - Heart rate irregular [Unknown]

NARRATIVE: CASE EVENT DATE: 20190703
